FAERS Safety Report 16766209 (Version 21)
Quarter: 2022Q4

REPORT INFORMATION
  Report Type: Spontaneous
  Country: IN (occurrence: IN)
  Receive Date: 20190903
  Receipt Date: 20221005
  Transmission Date: 20230113
  Serious: Yes (Hospitalization, Other)
  Sender: FDA-Public Use
  Company Number: IN-PFIZER INC-2019352041

PATIENT
  Age: 70 Year
  Sex: Male
  Weight: 66 kg

DRUGS (19)
  1. SUTENT [Suspect]
     Active Substance: SUNITINIB MALATE
     Indication: Metastatic renal cell carcinoma
     Dosage: 50 MG, 1X/DAY
     Route: 048
     Dates: start: 20190805, end: 201908
  2. SUTENT [Suspect]
     Active Substance: SUNITINIB MALATE
     Dosage: 37.5 MG, UNK
     Dates: start: 2019, end: 2019
  3. SUTENT [Suspect]
     Active Substance: SUNITINIB MALATE
     Dosage: 25 MG, 1X/DAY
     Dates: start: 201908, end: 20191116
  4. SUTENT [Suspect]
     Active Substance: SUNITINIB MALATE
     Dosage: UNK
     Dates: start: 2019, end: 20191208
  5. SUTENT [Suspect]
     Active Substance: SUNITINIB MALATE
     Dosage: 25 MG, 1X/DAY (OD)
  6. SUTENT [Suspect]
     Active Substance: SUNITINIB MALATE
     Dosage: 25 MG (2 WEEKS ON AND 1 WEEK OFF)
  7. SUTENT [Suspect]
     Active Substance: SUNITINIB MALATE
     Dosage: 25 MG, 4 WEEKS ON THEN 2 WEEKS OFF
  8. SUTENT [Suspect]
     Active Substance: SUNITINIB MALATE
     Dosage: 37.5 MG, CYCLIC, 2 WEEKS ON AND 1 WEEK OFF
     Dates: start: 20210406
  9. SUTENT [Suspect]
     Active Substance: SUNITINIB MALATE
     Dosage: 37.5 MG, CYCLIC, 4 WEEKS ON AND 1 WEEK OFF
  10. SUTENT [Suspect]
     Active Substance: SUNITINIB MALATE
     Dosage: 37.5 MG, ALTERNATE DAY (37.5 MG ALT WITH 25MG OD X 4WEEKS 2 WEEKS OFF)
  11. SUTENT [Suspect]
     Active Substance: SUNITINIB MALATE
     Dosage: 25 MG, ALTERNATE DAY (37.5 MG ALT WITH 25MG OD X 4WEEKS 2 WEEKS OFF)
  12. SUTENT [Suspect]
     Active Substance: SUNITINIB MALATE
     Dosage: 25 MG, ALTERNATE DAY (37.5 MG ALT WITH 25MG OD X 4WEEKS)
  13. SUTENT [Suspect]
     Active Substance: SUNITINIB MALATE
     Dosage: 37.5 MG, 1X/DAY (2 WEEKS ON 1 WEEK OFF)
  14. NUZIDE [Concomitant]
     Indication: Diabetes mellitus
     Dosage: UNK
  15. THYROX [Concomitant]
     Indication: Thyroid disorder
     Dosage: 75 MG, UNK
  16. THYROX [Concomitant]
     Dosage: 100 UNK
  17. LOSARTAN POTASSIUM [Concomitant]
     Active Substance: LOSARTAN POTASSIUM
     Indication: Hypertension
     Dosage: 50 MG, UNK
  18. PANTOCID [Concomitant]
     Dosage: 1 DF, 1X/DAY
     Dates: start: 20191123
  19. ULTRACET [Concomitant]
     Active Substance: ACETAMINOPHEN\TRAMADOL HYDROCHLORIDE
     Dosage: 1 TAB, SOS

REACTIONS (26)
  - Vertigo [Unknown]
  - Dizziness [Unknown]
  - Pathological fracture [Recovering/Resolving]
  - Blood pressure systolic increased [Unknown]
  - Nausea [Unknown]
  - Malaise [Unknown]
  - Back pain [Unknown]
  - Pelvic pain [Unknown]
  - Lung consolidation [Unknown]
  - Arthralgia [Unknown]
  - Mouth ulceration [Unknown]
  - Vomiting [Unknown]
  - Diarrhoea [Unknown]
  - Musculoskeletal chest pain [Unknown]
  - Weight decreased [Unknown]
  - Ecchymosis [Unknown]
  - Gastritis [Unknown]
  - Facial pain [Unknown]
  - Swelling [Unknown]
  - Gynaecomastia [Unknown]
  - Rash vesicular [Unknown]
  - Herpes virus infection [Unknown]
  - Product use issue [Unknown]
  - Off label use [Unknown]
  - Weight increased [Unknown]
  - Neoplasm progression [Unknown]

NARRATIVE: CASE EVENT DATE: 20190801
